APPROVED DRUG PRODUCT: OMLONTI
Active Ingredient: OMIDENEPAG ISOPROPYL
Strength: 0.002%
Dosage Form/Route: SOLUTION;OPHTHALMIC
Application: N215092 | Product #001
Applicant: OCUVEX THERAPEUTICS INC
Approved: Sep 22, 2022 | RLD: Yes | RS: Yes | Type: RX

PATENTS:
Patent 11666563 | Expires: Jul 16, 2039
Patent 12295946 | Expires: Jan 8, 2035
Patent 12290511 | Expires: Dec 27, 2038
Patent 11197849 | Expires: Jan 8, 2035
Patent 10702511 | Expires: Jan 8, 2035
Patent 10179127 | Expires: Jan 8, 2035
Patent 9415038 | Expires: Jan 8, 2035
Patent RE48183 | Expires: Jan 8, 2035
Patent 11793798 | Expires: Jan 8, 2035
Patent 10774072 | Expires: Jun 10, 2035
Patent 8648097 | Expires: Oct 13, 2029
Patent 8685986 | Expires: Oct 13, 2029
Patent 10765750 | Expires: Jan 8, 2035

EXCLUSIVITY:
Code: NCE | Date: Sep 22, 2027